FAERS Safety Report 5711446-3 (Version None)
Quarter: 2008Q2

REPORT INFORMATION
  Report Type: 
  Country: None (occurrence: None)
  Receive Date: 20080421
  Receipt Date: 20080411
  Transmission Date: 20081010
  Serious: Yes (Hospitalization)
  Sender: FDA-Public Use
  Company Number: BE-MERCK-0804BEL00009

PATIENT
  Age: 72 Year
  Sex: Female

DRUGS (5)
  1. FOSAMAX [Suspect]
     Indication: OSTEOPOROSIS
     Route: 048
  2. CALCIUM (UNSPECIFIED) [Concomitant]
     Indication: OSTEOPOROSIS
     Route: 048
  3. METOPROLOL [Concomitant]
     Indication: CORONARY ARTERY INSUFFICIENCY
     Route: 048
  4. ASPIRIN [Concomitant]
     Indication: CORONARY ARTERY INSUFFICIENCY
     Route: 048
  5. AMLODIPINE BESYLATE [Concomitant]
     Indication: HYPERTENSION
     Route: 048

REACTIONS (1)
  - FEMUR FRACTURE [None]
